FAERS Safety Report 6469975-3 (Version None)
Quarter: 2009Q4

REPORT INFORMATION
  Report Type: 
  Country: None (occurrence: None)
  Receive Date: 20091203
  Receipt Date: 20071228
  Transmission Date: 20100525
  Serious: Yes (Hospitalization)
  Sender: FDA-Public Use
  Company Number: IN-ELI_LILLY_AND_COMPANY-IN200801000027

PATIENT
  Age: 9 Year
  Sex: Female

DRUGS (2)
  1. HUMINSULIN 30% REGULAR, 70% NPH [Suspect]
     Indication: TYPE 1 DIABETES MELLITUS
     Dosage: UNK, UNKNOWN
     Route: 058
     Dates: start: 20041201, end: 20071201
  2. HUMINSULIN 30% REGULAR, 70% NPH [Suspect]
     Dosage: UNK, UNKNOWN
     Route: 058
     Dates: start: 20071201

REACTIONS (4)
  - BLOOD GLUCOSE INCREASED [None]
  - DIABETES MELLITUS INADEQUATE CONTROL [None]
  - NAUSEA [None]
  - VOMITING [None]
